FAERS Safety Report 9673961 (Version 1)
Quarter: 2013Q4

REPORT INFORMATION
  Report Type: Spontaneous
  Country: US (occurrence: US)
  Receive Date: 20131106
  Receipt Date: 20131106
  Transmission Date: 20140711
  Serious: Yes (Other)
  Sender: FDA-Public Use
  Company Number: US-JNJFOC-20131016052

PATIENT
  Age: 0 Day
  Sex: Male
  Weight: 3.52 kg

DRUGS (4)
  1. FAMOTIDINE [Suspect]
     Route: 064
  2. FAMOTIDINE [Suspect]
     Indication: GASTROOESOPHAGEAL REFLUX DISEASE
     Route: 064
     Dates: start: 20120905, end: 20121213
  3. ASPIRIN [Suspect]
     Indication: PROPHYLAXIS
     Route: 064
     Dates: start: 20120905, end: 20121213
  4. VALSARTAN [Suspect]
     Indication: HYPERTENSION
     Dosage: 10MG/320MG
     Route: 064
     Dates: start: 20121102, end: 20121213

REACTIONS (3)
  - Anal atresia [Unknown]
  - Respiratory distress [Unknown]
  - Trisomy 21 [Unknown]
